FAERS Safety Report 16866971 (Version 1)
Quarter: 2019Q4

REPORT INFORMATION
  Report Type: Spontaneous
  Country: US (occurrence: US)
  Receive Date: 20190928
  Receipt Date: 20190928
  Transmission Date: 20200122
  Serious: Yes (Life-Threatening, Hospitalization, Disabling)
  Sender: FDA-Public Use
  Company Number: None

PATIENT
  Age: 34 Year
  Sex: Male
  Weight: 123.75 kg

DRUGS (1)
  1. AMBIEN [Suspect]
     Active Substance: ZOLPIDEM TARTRATE
     Indication: INSOMNIA
     Dosage: ?          QUANTITY:2 TABLET(S);?
     Route: 048

REACTIONS (16)
  - Abnormal behaviour [None]
  - Product complaint [None]
  - Suicide attempt [None]
  - Obesity [None]
  - Drug dependence [None]
  - Insomnia [None]
  - Agoraphobia [None]
  - Cognitive disorder [None]
  - Agitation [None]
  - Somnambulism [None]
  - Secondary hypertension [None]
  - Marital problem [None]
  - Disturbance in attention [None]
  - Confusional state [None]
  - Amnesia [None]
  - Weight increased [None]

NARRATIVE: CASE EVENT DATE: 20130211
